FAERS Safety Report 23555280 (Version 1)
Quarter: 2024Q1

REPORT INFORMATION
  Report Type: Spontaneous
  Country: CN (occurrence: CN)
  Receive Date: 20240222
  Receipt Date: 20240222
  Transmission Date: 20240409
  Serious: Yes (Other)
  Sender: FDA-Public Use
  Company Number: CN-PFIZER INC-PV202400024165

PATIENT
  Age: 41 Year
  Sex: Female

DRUGS (1)
  1. ZITHROMAX [Suspect]
     Active Substance: AZITHROMYCIN DIHYDRATE
     Indication: Abdominal pain
     Dosage: 0.5 G, 1X/DAY
     Route: 041
     Dates: start: 20240121, end: 20240121

REACTIONS (3)
  - Rash [Recovering/Resolving]
  - Tachypnoea [Recovering/Resolving]
  - Off label use [Unknown]

NARRATIVE: CASE EVENT DATE: 20240121
